FAERS Safety Report 20079452 (Version 2)
Quarter: 2021Q4

REPORT INFORMATION
  Report Type: Other
  Country: US (occurrence: US)
  Receive Date: 20211117
  Receipt Date: 20211209
  Transmission Date: 20220304
  Serious: No
  Sender: FDA-Public Use
  Company Number: US-APOTEX-2021AP045171

PATIENT
  Sex: Female

DRUGS (4)
  1. FENTANYL TRANSDERMAL SYSTEM [Suspect]
     Active Substance: FENTANYL
     Indication: Pain
     Dosage: 50MICROGRAM/HOUR,1 DOSAGE FORM (1 PATCH EVERY 72 HOURS)
     Route: 065
  2. FENTANYL TRANSDERMAL SYSTEM [Suspect]
     Active Substance: FENTANYL
     Indication: Scoliosis
  3. SYNTHROID [Concomitant]
     Active Substance: LEVOTHYROXINE SODIUM
     Indication: Hypothyroidism
     Dosage: 1 DOSAGE FORM, QD
     Route: 065
  4. DULERA [Concomitant]
     Active Substance: FORMOTEROL FUMARATE DIHYDRATE\MOMETASONE FUROATE
     Indication: Asthma
     Dosage: UNK, QD
     Route: 065

REACTIONS (13)
  - Neck pain [Recovered/Resolved]
  - Product adhesion issue [Unknown]
  - Pain [Recovered/Resolved]
  - Back pain [Recovered/Resolved]
  - Dysarthria [Recovered/Resolved]
  - Impaired driving ability [Recovered/Resolved]
  - Feeling abnormal [Recovered/Resolved]
  - Device malfunction [Unknown]
  - Product substitution issue [Unknown]
  - Headache [Recovered/Resolved]
  - Nausea [Recovered/Resolved]
  - Somnolence [Recovered/Resolved]
  - Dizziness [Recovered/Resolved]
